FAERS Safety Report 19823010 (Version 1)
Quarter: 2021Q3

REPORT INFORMATION
  Report Type: Spontaneous
  Country: US (occurrence: US)
  Receive Date: 20210913
  Receipt Date: 20210913
  Transmission Date: 20211014
  Serious: Yes (Other)
  Sender: FDA-Public Use
  Company Number: US-GLAXOSMITHKLINE-US2021GSK193885

PATIENT
  Sex: Female

DRUGS (4)
  1. RANITIDINE. [Suspect]
     Active Substance: RANITIDINE
     Indication: GASTRIC BYPASS
     Dosage: 25 MG, QD
     Route: 065
     Dates: start: 201003, end: 201906
  2. ZANTAC [Suspect]
     Active Substance: RANITIDINE HYDROCHLORIDE
     Indication: GASTRIC BYPASS
     Dosage: 25 MG, QD
     Route: 065
     Dates: start: 201101, end: 201901
  3. ZANTAC [Suspect]
     Active Substance: RANITIDINE HYDROCHLORIDE
     Indication: GASTRIC BYPASS
     Dosage: 25 MG, QD
     Route: 065
     Dates: start: 201101, end: 201901
  4. RANITIDINE CAPSULE [Suspect]
     Active Substance: RANITIDINE
     Indication: GASTRIC BYPASS
     Dosage: 25 MG, QD
     Route: 065
     Dates: start: 201003, end: 201906

REACTIONS (1)
  - Haematological malignancy [Unknown]
